FAERS Safety Report 8128759-0 (Version None)
Quarter: 2012Q1

REPORT INFORMATION
  Report Type: 
  Country: None (occurrence: None)
  Receive Date: 20120210
  Receipt Date: 20120203
  Transmission Date: 20120608
  Serious: Yes (Hospitalization)
  Sender: FDA-Public Use
  Company Number: US-BAYER-2011-091685

PATIENT
  Age: 20 Year
  Sex: Female
  Weight: 68.027 kg

DRUGS (2)
  1. YAZ [Suspect]
     Dosage: UNK
     Dates: start: 20060101, end: 20070201
  2. YASMIN [Suspect]
     Dosage: UNK
     Dates: start: 20060101, end: 20070201

REACTIONS (9)
  - PAIN [None]
  - GENERAL PHYSICAL HEALTH DETERIORATION [None]
  - GALLBLADDER DISORDER [None]
  - BACK PAIN [None]
  - EMOTIONAL DISTRESS [None]
  - WEIGHT DECREASED [None]
  - ANXIETY [None]
  - ANHEDONIA [None]
  - ABDOMINAL PAIN UPPER [None]
